FAERS Safety Report 6729939-9 (Version None)
Quarter: 2010Q2

REPORT INFORMATION
  Report Type: 
  Country: None (occurrence: None)
  Receive Date: 20100518
  Receipt Date: 20100512
  Transmission Date: 20101027
  Serious: Yes (Hospitalization, Other)
  Sender: FDA-Public Use
  Company Number: GR-JNJFOC-20071205950

PATIENT
  Sex: Male
  Weight: 63 kg

DRUGS (1)
  1. PLACEBO (INFLIXIMAB) [Suspect]
     Indication: DIABETIC RETINAL OEDEMA
     Route: 042

REACTIONS (1)
  - BREAST CANCER [None]
